FAERS Safety Report 24886155 (Version 1)
Quarter: 2025Q1

REPORT INFORMATION
  Report Type: Spontaneous
  Country: US (occurrence: US)
  Receive Date: 20250125
  Receipt Date: 20250125
  Transmission Date: 20250409
  Serious: Yes (Death, Hospitalization, Other)
  Sender: AMGEN
  Company Number: US-AMGEN-USASP2025015819

PATIENT
  Age: 6 Month
  Sex: Male

DRUGS (13)
  1. RITUXIMAB [Suspect]
     Active Substance: RITUXIMAB
     Indication: Stem cell transplant
     Route: 065
  2. ACTIMMUNE [Suspect]
     Active Substance: INTERFERON GAMMA-1B
     Indication: Combined immunodeficiency
     Route: 065
  3. ACTIMMUNE [Suspect]
     Active Substance: INTERFERON GAMMA-1B
     Indication: Atypical mycobacterial infection
  4. SULFAMETHOXAZOLE\TRIMETHOPRIM [Concomitant]
     Active Substance: SULFAMETHOXAZOLE\TRIMETHOPRIM
     Indication: Pneumocystis jirovecii pneumonia
     Route: 065
  5. HUMAN IMMUNOGLOBULIN G [Concomitant]
     Active Substance: HUMAN IMMUNOGLOBULIN G
     Indication: Pneumocystis jirovecii pneumonia
     Route: 040
  6. RIFAMPIN [Concomitant]
     Active Substance: RIFAMPIN
     Indication: Atypical mycobacterial infection
  7. AZITHROMYCIN [Concomitant]
     Active Substance: AZITHROMYCIN
     Indication: Atypical mycobacterial infection
  8. ETHAMBUTOL [Concomitant]
     Active Substance: ETHAMBUTOL HYDROCHLORIDE
     Indication: Atypical mycobacterial infection
  9. ISONIAZID [Concomitant]
     Active Substance: ISONIAZID
     Indication: Atypical mycobacterial infection
  10. AMIKACIN [Concomitant]
     Active Substance: AMIKACIN
     Indication: Atypical mycobacterial infection
  11. LAPINE T-LYMPHOCYTE IMMUNE GLOBULIN [Concomitant]
     Active Substance: LAPINE T-LYMPHOCYTE IMMUNE GLOBULIN
     Indication: Stem cell transplant
  12. BUSULFAN [Concomitant]
     Active Substance: BUSULFAN
     Indication: Stem cell transplant
  13. FLUDARABINE [Concomitant]
     Active Substance: FLUDARABINE PHOSPHATE
     Indication: Stem cell transplant

REACTIONS (14)
  - Cardiac arrest [Fatal]
  - Cardiac tamponade [Fatal]
  - Inflammation [Fatal]
  - Respiratory failure [Fatal]
  - Pericardial effusion [Unknown]
  - Right ventricular hypertrophy [Unknown]
  - Congestive hepatopathy [Unknown]
  - Failure to thrive [Unknown]
  - Colitis [Unknown]
  - Posterior reversible encephalopathy syndrome [Unknown]
  - Interstitial lung disease [Unknown]
  - Graft versus host disease in skin [Unknown]
  - Mucosal inflammation [Unknown]
  - Off label use [Unknown]
